FAERS Safety Report 10021763 (Version 1)
Quarter: 2014Q1

REPORT INFORMATION
  Report Type: Spontaneous
  Country: US (occurrence: US)
  Receive Date: 20140319
  Receipt Date: 20140319
  Transmission Date: 20141002
  Serious: No
  Sender: FDA-Public Use
  Company Number: US-009507513-1403USA007173

PATIENT
  Sex: 0

DRUGS (3)
  1. REBETOL [Suspect]
     Route: 048
  2. VICTRELIS [Suspect]
     Dosage: UNK
     Route: 048
     Dates: end: 201402
  3. PEGASYS [Suspect]

REACTIONS (1)
  - Rash [Unknown]
